FAERS Safety Report 25681844 (Version 1)
Quarter: 2025Q3

REPORT INFORMATION
  Report Type: Spontaneous
  Country: US (occurrence: US)
  Receive Date: 20250814
  Receipt Date: 20250814
  Transmission Date: 20251021
  Serious: No
  Sender: ABBVIE
  Company Number: US-ABBVIE-6409011

PATIENT
  Sex: Female

DRUGS (1)
  1. RINVOQ [Suspect]
     Active Substance: UPADACITINIB
     Indication: Product used for unknown indication
     Route: 048

REACTIONS (8)
  - Back pain [Unknown]
  - Drug ineffective [Unknown]
  - Arthritis [Unknown]
  - Discomfort [Unknown]
  - Sciatica [Unknown]
  - Sitting disability [Unknown]
  - Dysstasia [Unknown]
  - Gait inability [Unknown]

NARRATIVE: CASE EVENT DATE: 20250101
